FAERS Safety Report 8281428-9 (Version None)
Quarter: 2012Q2

REPORT INFORMATION
  Report Type: 
  Country: None (occurrence: None)
  Receive Date: 20120411
  Receipt Date: 20120411
  Transmission Date: 20120825
  Serious: Yes (Other)
  Sender: FDA-Public Use
  Company Number: None

PATIENT
  Age: 73 Year
  Sex: Female
  Weight: 88.6 kg

DRUGS (2)
  1. ETODOLAC [Suspect]
     Indication: ARTHRALGIA
     Dosage: 500 MG TWICE DAILY FOR 7 DAYS ; 500 MG ONCE DAILY REMAINING SUPPLY
     Dates: start: 20120314, end: 20120321
  2. ETODOLAC [Suspect]
     Indication: JOINT SWELLING
     Dosage: 500 MG TWICE DAILY FOR 7 DAYS ; 500 MG ONCE DAILY REMAINING SUPPLY
     Dates: start: 20120314, end: 20120321

REACTIONS (6)
  - PRURITUS [None]
  - RASH MORBILLIFORM [None]
  - HYPERSENSITIVITY [None]
  - PALPITATIONS [None]
  - URTICARIA [None]
  - ERYTHEMA [None]
